FAERS Safety Report 10543737 (Version 2)
Quarter: 2014Q4

REPORT INFORMATION
  Report Type: Spontaneous
  Country: SG (occurrence: None)
  Receive Date: 20141023
  Receipt Date: 20141106
  Transmission Date: 20150529
  Serious: Yes (Death)
  Sender: FDA-Public Use
  Company Number: 7328857

PATIENT
  Age: 66 Year
  Sex: Female

DRUGS (1)
  1. LEVOTHYROXINE (LEVOTHYROXINE) (LEVOTHYROXINE SODIUM) [Suspect]
     Active Substance: LEVOTHYROXINE
     Indication: HYPERTHYROIDISM
     Dosage: DAY POST THYROIDECTOMY.

REACTIONS (2)
  - Thyroid cancer metastatic [None]
  - Papillary thyroid cancer [None]
